FAERS Safety Report 9599041 (Version 1)
Quarter: 2013Q4

REPORT INFORMATION
  Report Type: Spontaneous
  Country: US (occurrence: US)
  Receive Date: 20131004
  Receipt Date: 20131004
  Transmission Date: 20140711
  Serious: No
  Sender: FDA-Public Use
  Company Number: US-AMGEN-USASP2013027648

PATIENT
  Age: 56 Year
  Sex: Female
  Weight: 77.55 kg

DRUGS (7)
  1. ENBREL [Suspect]
     Indication: PRODUCT USED FOR UNKNOWN INDICATION
     Dosage: 50 MG, QWK
     Route: 058
     Dates: end: 20130408
  2. METHOTREXATE [Concomitant]
     Dosage: 2.5 MG, UNK
  3. NAPROXEN [Concomitant]
     Dosage: 250 MG, UNK
  4. FISH OIL [Concomitant]
     Dosage: UNK
  5. MULTIVITAMINS, PLAIN [Concomitant]
     Dosage: UNK
  6. FOLIC ACID [Concomitant]
     Dosage: 20 MG, UNK
  7. PROBIOTIC                          /06395501/ [Concomitant]
     Dosage: UNK

REACTIONS (4)
  - Rash [Unknown]
  - Rash pruritic [Unknown]
  - Rash papular [Unknown]
  - Injection site erythema [Unknown]
